FAERS Safety Report 10639531 (Version 1)
Quarter: 2014Q4

REPORT INFORMATION
  Report Type: Spontaneous
  Country: US (occurrence: US)
  Receive Date: 20141209
  Receipt Date: 20141209
  Transmission Date: 20150529
  Serious: No
  Sender: FDA-Public Use
  Company Number: US-009507513-1411USA007670

PATIENT
  Age: 27 Year
  Sex: Female

DRUGS (6)
  1. CEFTAZIDIME. [Concomitant]
     Active Substance: CEFTAZIDIME
  2. METOPROLOL [Concomitant]
     Active Substance: METOPROLOL
  3. IRON (UNSPECIFIED) (+) MINERALS (UNSPECIFIED) (+) VITAMINS (UNSPECIFIE [Concomitant]
     Active Substance: IRON\MINERALS\VITAMINS
  4. VANCOMYCIN [Concomitant]
     Active Substance: VANCOMYCIN
  5. METHYLPREDNISOLONE SODIUM SUCCINATE. [Suspect]
     Active Substance: METHYLPREDNISOLONE SODIUM SUCCINATE
  6. FUROSEMIDE. [Suspect]
     Active Substance: FUROSEMIDE
     Route: 042

REACTIONS (1)
  - Exposure during pregnancy [Recovered/Resolved]
